FAERS Safety Report 9465074 (Version 1)
Quarter: 2013Q3

REPORT INFORMATION
  Report Type: Spontaneous
  Country: GB (occurrence: GB)
  Receive Date: 20130819
  Receipt Date: 20130819
  Transmission Date: 20140515
  Serious: Yes (Other)
  Sender: FDA-Public Use
  Company Number: GB-UCBSA-095753

PATIENT
  Sex: Female

DRUGS (5)
  1. CIMZIA [Suspect]
     Indication: RHEUMATOID ARTHRITIS
  2. DICLOFENAC [Concomitant]
     Indication: PAIN
  3. PARACETAMOL [Concomitant]
     Indication: PAIN
  4. TRAMADOL [Concomitant]
     Indication: PAIN
  5. EPILIM [Concomitant]

REACTIONS (3)
  - Psoriasis [Unknown]
  - Stress [Unknown]
  - Drug ineffective [Unknown]
